FAERS Safety Report 17283383 (Version 1)
Quarter: 2020Q1

REPORT INFORMATION
  Report Type: Spontaneous
  Country: US (occurrence: US)
  Receive Date: 20200117
  Receipt Date: 20200117
  Transmission Date: 20200409
  Serious: Yes (Other)
  Sender: FDA-Public Use
  Company Number: None

PATIENT
  Age: 58 Year
  Weight: 110.7 kg

DRUGS (5)
  1. LOSARTAN. [Concomitant]
     Active Substance: LOSARTAN
  2. AMLODIPINE [Concomitant]
     Active Substance: AMLODIPINE BESYLATE
  3. SENIOR MULTIVITAMINS [Concomitant]
     Active Substance: VITAMINS
  4. ASPIRIN 81 MG [Concomitant]
     Active Substance: ASPIRIN
  5. ZOLPIDEM TARTRATE 10MG [Suspect]
     Active Substance: ZOLPIDEM TARTRATE
     Indication: HYPERTENSION
     Dosage: ?          QUANTITY:15 TABLET(S);?
     Route: 048

REACTIONS (4)
  - Drug dispensed to wrong patient [None]
  - Drug withdrawal syndrome [None]
  - Product dispensing error [None]
  - Emotional disorder [None]

NARRATIVE: CASE EVENT DATE: 20191219
